FAERS Safety Report 7232405-8 (Version None)
Quarter: 2011Q1

REPORT INFORMATION
  Report Type: 
  Country: None (occurrence: None)
  Receive Date: 20110105
  Receipt Date: 20101220
  Transmission Date: 20110831
  Serious: Yes (Hospitalization)
  Sender: FDA-Public Use
  Company Number: 2010005650

PATIENT
  Age: 51 Year
  Sex: Female

DRUGS (3)
  1. SYNTHROID [Concomitant]
  2. ERLOTINIB (ERLOTINIB) (TABLET) (ERLOTINIB) [Suspect]
     Indication: BRAIN NEOPLASM
     Dosage: (150 MG, QD), ORAL
     Route: 048
  3. ETOPOSIDE [Concomitant]

REACTIONS (8)
  - DYSPEPSIA [None]
  - ABASIA [None]
  - IMPAIRED DRIVING ABILITY [None]
  - VOMITING [None]
  - MALAISE [None]
  - APHAGIA [None]
  - DEHYDRATION [None]
  - GASTROOESOPHAGEAL REFLUX DISEASE [None]
